FAERS Safety Report 14923231 (Version 1)
Quarter: 2018Q2

REPORT INFORMATION
  Report Type: Spontaneous
  Country: IT (occurrence: IT)
  Receive Date: 20180522
  Receipt Date: 20180522
  Transmission Date: 20180711
  Serious: Yes (Hospitalization)
  Sender: FDA-Public Use
  Company Number: IT-TEVA-2018-IT-893082

PATIENT
  Age: 31 Year
  Sex: Male

DRUGS (2)
  1. LEVOFLOXACINA SANDOZ [Suspect]
     Active Substance: LEVOFLOXACIN
     Indication: SKIN ULCER
     Dosage: 1 DOSAGE FORMS DAILY;
     Route: 048
  2. TRAMADOL. [Suspect]
     Active Substance: TRAMADOL
     Indication: PAIN
     Route: 042

REACTIONS (2)
  - Transaminases increased [Recovering/Resolving]
  - Drug reaction with eosinophilia and systemic symptoms [Recovering/Resolving]
